FAERS Safety Report 18569750 (Version 2)
Quarter: 2020Q4

REPORT INFORMATION
  Report Type: Spontaneous
  Country: US (occurrence: US)
  Receive Date: 20201202
  Receipt Date: 20201207
  Transmission Date: 20210114
  Serious: Yes (Other)
  Sender: FDA-Public Use
  Company Number: US-PFIZER INC-2020471379

PATIENT
  Sex: Male
  Weight: 77.11 kg

DRUGS (2)
  1. LISINOPRIL. [Concomitant]
     Active Substance: LISINOPRIL
     Indication: HYPERTENSION
     Dosage: UNK
  2. VIAGRA [Suspect]
     Active Substance: SILDENAFIL CITRATE
     Dosage: 1 DF, SINGLE (TOOK ONE PILL, ONE TIME)

REACTIONS (4)
  - Deafness [Unknown]
  - Tinnitus [Unknown]
  - Abnormal behaviour [Unknown]
  - Suicide attempt [Unknown]
